FAERS Safety Report 20070288 (Version 2)
Quarter: 2021Q4

REPORT INFORMATION
  Report Type: Spontaneous
  Country: CZ (occurrence: CZ)
  Receive Date: 20211115
  Receipt Date: 20211117
  Transmission Date: 20220303
  Serious: Yes (Other)
  Sender: FDA-Public Use
  Company Number: CZ-ABBVIE-21K-217-4161336-00

PATIENT
  Age: 30 Year
  Sex: Male

DRUGS (6)
  1. VALPROIC ACID [Suspect]
     Active Substance: VALPROIC ACID
     Indication: Idiopathic generalised epilepsy
     Route: 065
     Dates: end: 2015
  2. CARBAMAZEPINE [Suspect]
     Active Substance: CARBAMAZEPINE
     Indication: Idiopathic generalised epilepsy
     Dosage: 600 MG
     Route: 048
     Dates: end: 2015
  3. LAMOTRIGINE [Suspect]
     Active Substance: LAMOTRIGINE
     Indication: Idiopathic generalised epilepsy
     Dosage: 100 MG
     Route: 048
     Dates: end: 2015
  4. CLONAZEPAM [Suspect]
     Active Substance: CLONAZEPAM
     Indication: Idiopathic generalised epilepsy
     Dosage: 2-3MG DAILY
     Route: 065
     Dates: end: 2015
  5. PERAMPANEL [Concomitant]
     Active Substance: PERAMPANEL
     Indication: Product used for unknown indication
  6. LEVETIRACETAM [Concomitant]
     Active Substance: LEVETIRACETAM
     Indication: Product used for unknown indication

REACTIONS (14)
  - Insomnia [Recovered/Resolved]
  - Impaired quality of life [Recovered/Resolved]
  - Depression [Recovered/Resolved]
  - Joint injury [Recovered/Resolved]
  - Thermal burn [Recovered/Resolved]
  - Osteopenia [Recovered/Resolved]
  - Tremor [Recovered/Resolved]
  - Weight increased [Recovered/Resolved]
  - Drug ineffective [Unknown]
  - Generalised tonic-clonic seizure [Recovered/Resolved]
  - Treatment noncompliance [Unknown]
  - Drug dependence [Unknown]
  - Alopecia [Recovered/Resolved]
  - Drug withdrawal syndrome [Recovered/Resolved]

NARRATIVE: CASE EVENT DATE: 20150101
